FAERS Safety Report 20710494 (Version 1)
Quarter: 2022Q2

REPORT INFORMATION
  Report Type: Spontaneous
  Country: DK (occurrence: DK)
  Receive Date: 20220414
  Receipt Date: 20220414
  Transmission Date: 20220721
  Serious: Yes (Hospitalization)
  Sender: FDA-Public Use
  Company Number: None

PATIENT
  Age: 54 Year
  Sex: Female
  Weight: 50 kg

DRUGS (1)
  1. ALUNBRIG [Suspect]
     Active Substance: BRIGATINIB
     Indication: Lung neoplasm malignant
     Dosage: 180 MILLIGRAM, QD
     Route: 048
     Dates: start: 20220310, end: 20220329

REACTIONS (7)
  - Tenderness [Unknown]
  - Haematuria [Unknown]
  - Hydroureter [Unknown]
  - Renal pain [Unknown]
  - Renal failure [Not Recovered/Not Resolved]
  - Hydronephrosis [Unknown]
  - Ureteral disorder [Unknown]

NARRATIVE: CASE EVENT DATE: 20220301
